FAERS Safety Report 14746121 (Version 1)
Quarter: 2018Q2

REPORT INFORMATION
  Report Type: Report from Study
  Country: US (occurrence: HU)
  Receive Date: 20180411
  Receipt Date: 20180411
  Transmission Date: 20180711
  Serious: Yes (Death, Other)
  Sender: FDA-Public Use
  Company Number: US-SUNOVION-2018SUN001381

PATIENT

DRUGS (8)
  1. MILURIT [Concomitant]
     Active Substance: ALLOPURINOL
  2. CO-ARBARTAN [Concomitant]
  3. AMLODIPINE [Concomitant]
     Active Substance: AMLODIPINE BESYLATE
  4. RYTMONORMA [Concomitant]
  5. THEOSPIREX [Concomitant]
     Active Substance: THEOPHYLLINE ANHYDROUS
  6. INDACATEROL AND GLYCOPYRROLATE [Suspect]
     Active Substance: GLYCOPYRROLATE\INDACATEROL MALEATE
     Indication: CHRONIC OBSTRUCTIVE PULMONARY DISEASE
     Dosage: 1 DF, QD
     Route: 055
     Dates: start: 20180301
  7. TENAXUM [Concomitant]
     Active Substance: RILMENIDINE
  8. FRONTIN [Concomitant]
     Active Substance: ALPRAZOLAM

REACTIONS (10)
  - Glomerular filtration rate decreased [Unknown]
  - Aortic aneurysm [Unknown]
  - Blood urea increased [Unknown]
  - Haemoglobin decreased [Unknown]
  - Adenocarcinoma of colon [Unknown]
  - Blood creatinine increased [Unknown]
  - Haematocrit decreased [Unknown]
  - Red blood cell count decreased [Unknown]
  - Death [Fatal]
  - Blood glucose increased [Unknown]

NARRATIVE: CASE EVENT DATE: 20180308
